FAERS Safety Report 15000151 (Version 1)
Quarter: 2018Q2

REPORT INFORMATION
  Report Type: Spontaneous
  Country: US (occurrence: US)
  Receive Date: 20180612
  Receipt Date: 20180612
  Transmission Date: 20180711
  Serious: No
  Sender: FDA-Public Use
  Company Number: US-PERRIGO-17US024357

PATIENT
  Age: 70 Year
  Sex: Female
  Weight: 54.42 kg

DRUGS (2)
  1. AZELASTINE HYDROCHLORIDE. [Suspect]
     Active Substance: AZELASTINE HYDROCHLORIDE
     Dosage: 4 TO 5 SPRAYS IN EACH NOSTRIL, TWICE DAILY
     Route: 045
     Dates: start: 201704
  2. AZELASTINE HYDROCHLORIDE. [Suspect]
     Active Substance: AZELASTINE HYDROCHLORIDE
     Indication: RHINORRHOEA
     Dosage: 2 SPRAYS IN EACH NOSTRIL, BID
     Route: 045
     Dates: start: 2016, end: 201704

REACTIONS (1)
  - Incorrect dose administered [Not Recovered/Not Resolved]

NARRATIVE: CASE EVENT DATE: 201704
